FAERS Safety Report 4712326-2 (Version None)
Quarter: 2005Q3

REPORT INFORMATION
  Report Type: 
  Country: None (occurrence: None)
  Receive Date: 20050712
  Receipt Date: 20050606
  Transmission Date: 20060218
  Serious: Yes (Disabling, Other)
  Sender: FDA-Public Use
  Company Number: GBWYE720606JUN05

PATIENT
  Sex: Female

DRUGS (6)
  1. ENBREL [Suspect]
     Indication: RHEUMATOID ARTHRITIS
     Dosage: 25 MG EVERY 1 TOT
     Route: 058
     Dates: start: 20050222, end: 20050222
  2. HUMIRA [Concomitant]
     Dosage: UNKNOWN
  3. DEFLAZACORT [Concomitant]
     Dates: start: 19980428
  4. VOLTAROL - SLOW RELEASE [Concomitant]
     Dates: start: 19980428
  5. LANSOPRAZOLE [Concomitant]
  6. ATENOLOL [Concomitant]
     Dates: start: 20030501

REACTIONS (10)
  - CHILLS [None]
  - CONDITION AGGRAVATED [None]
  - DEHYDRATION [None]
  - DRY MOUTH [None]
  - HEADACHE [None]
  - HYPERSENSITIVITY [None]
  - JOINT SWELLING [None]
  - MICTURITION URGENCY [None]
  - RASH [None]
  - RHEUMATOID ARTHRITIS [None]
